FAERS Safety Report 22950037 (Version 2)
Quarter: 2023Q4

REPORT INFORMATION
  Report Type: Report from Study
  Country: JP (occurrence: JP)
  Receive Date: 20230915
  Receipt Date: 20231031
  Transmission Date: 20240110
  Serious: Yes (Hospitalization, Other)
  Sender: FDA-Public Use
  Company Number: JP-GLAXOSMITHKLINE-JP2023JPN124635

PATIENT

DRUGS (105)
  1. MEPOLIZUMAB [Suspect]
     Active Substance: MEPOLIZUMAB
     Indication: Eosinophilic granulomatosis with polyangiitis
     Dosage: 300 MG
     Route: 058
     Dates: start: 20190213, end: 20190213
  2. MEPOLIZUMAB [Suspect]
     Active Substance: MEPOLIZUMAB
     Dosage: 300 MG
     Route: 058
     Dates: start: 20190308, end: 20190308
  3. MEPOLIZUMAB [Suspect]
     Active Substance: MEPOLIZUMAB
     Dosage: 300 MG
     Route: 058
     Dates: start: 20190405, end: 20190405
  4. MEPOLIZUMAB [Suspect]
     Active Substance: MEPOLIZUMAB
     Dosage: 300 MG
     Route: 058
     Dates: start: 20190508, end: 20190508
  5. MEPOLIZUMAB [Suspect]
     Active Substance: MEPOLIZUMAB
     Dosage: 300 MG
     Route: 058
     Dates: start: 20190612, end: 20190612
  6. MEPOLIZUMAB [Suspect]
     Active Substance: MEPOLIZUMAB
     Dosage: 300 MG
     Route: 058
     Dates: start: 20190710, end: 20190710
  7. MEPOLIZUMAB [Suspect]
     Active Substance: MEPOLIZUMAB
     Dosage: 300 MG
     Route: 058
     Dates: start: 20190807, end: 20190807
  8. MEPOLIZUMAB [Suspect]
     Active Substance: MEPOLIZUMAB
     Dosage: 300 MG
     Route: 058
     Dates: start: 20190904, end: 20190904
  9. MEPOLIZUMAB [Suspect]
     Active Substance: MEPOLIZUMAB
     Dosage: 300 MG
     Route: 058
     Dates: start: 20191002, end: 20191002
  10. MEPOLIZUMAB [Suspect]
     Active Substance: MEPOLIZUMAB
     Dosage: 300 MG
     Route: 058
     Dates: start: 20191030, end: 20191030
  11. MEPOLIZUMAB [Suspect]
     Active Substance: MEPOLIZUMAB
     Dosage: 300 MG
     Route: 058
     Dates: start: 20191127, end: 20191127
  12. MEPOLIZUMAB [Suspect]
     Active Substance: MEPOLIZUMAB
     Dosage: 300 MG
     Route: 058
     Dates: start: 20191225, end: 20191225
  13. MEPOLIZUMAB [Suspect]
     Active Substance: MEPOLIZUMAB
     Dosage: 300 MG
     Route: 058
     Dates: start: 20200129, end: 20200129
  14. MEPOLIZUMAB [Suspect]
     Active Substance: MEPOLIZUMAB
     Dosage: 300 MG
     Route: 058
     Dates: start: 20200226, end: 20200226
  15. MEPOLIZUMAB [Suspect]
     Active Substance: MEPOLIZUMAB
     Dosage: 300 MG
     Route: 058
     Dates: start: 20200323, end: 20200323
  16. MEPOLIZUMAB [Suspect]
     Active Substance: MEPOLIZUMAB
     Dosage: 300 MG
     Route: 058
     Dates: start: 20200420, end: 20200420
  17. MEPOLIZUMAB [Suspect]
     Active Substance: MEPOLIZUMAB
     Dosage: 300 MG
     Route: 058
     Dates: start: 20200518, end: 20200518
  18. MEPOLIZUMAB [Suspect]
     Active Substance: MEPOLIZUMAB
     Dosage: 300 MG
     Route: 058
     Dates: start: 20200622, end: 20200622
  19. MEPOLIZUMAB [Suspect]
     Active Substance: MEPOLIZUMAB
     Dosage: 300 MG
     Route: 058
     Dates: start: 20200720, end: 20200720
  20. MEPOLIZUMAB [Suspect]
     Active Substance: MEPOLIZUMAB
     Dosage: 300 MG
     Route: 058
     Dates: start: 20200812, end: 20200812
  21. MEPOLIZUMAB [Suspect]
     Active Substance: MEPOLIZUMAB
     Dosage: 300 MG
     Route: 058
     Dates: start: 20200907, end: 20200907
  22. MEPOLIZUMAB [Suspect]
     Active Substance: MEPOLIZUMAB
     Dosage: 300 MG
     Route: 058
     Dates: start: 20201005, end: 20201005
  23. MEPOLIZUMAB [Suspect]
     Active Substance: MEPOLIZUMAB
     Dosage: 300 MG
     Route: 058
     Dates: start: 20201102, end: 20201102
  24. MEPOLIZUMAB [Suspect]
     Active Substance: MEPOLIZUMAB
     Dosage: 300 MG
     Route: 058
     Dates: start: 20201130, end: 20201130
  25. POLARAMINE [Suspect]
     Active Substance: DEXCHLORPHENIRAMINE MALEATE
     Indication: Urticaria chronic
  26. FLUTICASONE FUROATE [Suspect]
     Active Substance: FLUTICASONE FUROATE
     Indication: Eosinophilic granulomatosis with polyangiitis
     Dosage: 110 ?G, QD
     Dates: end: 20190709
  27. DECADRON [Suspect]
     Active Substance: DEXAMETHASONE
     Indication: Eosinophilic granulomatosis with polyangiitis
     Dosage: 3 MG, QD
     Dates: end: 20190213
  28. DECADRON [Suspect]
     Active Substance: DEXAMETHASONE
     Indication: Asthma
     Dosage: 2 MG, QD
     Dates: start: 20190214, end: 20190219
  29. DECADRON [Suspect]
     Active Substance: DEXAMETHASONE
     Indication: Asthma
     Dosage: 4 MG, QD
     Dates: start: 20190220, end: 20190304
  30. DECADRON [Suspect]
     Active Substance: DEXAMETHASONE
     Dosage: 4 MG
     Dates: start: 20190227, end: 20190311
  31. DECADRON [Suspect]
     Active Substance: DEXAMETHASONE
     Dosage: 3 MG, QD
     Dates: start: 20190305, end: 20190403
  32. DECADRON [Suspect]
     Active Substance: DEXAMETHASONE
     Dosage: 2.5 MG, QD
     Dates: start: 20190404, end: 20190410
  33. DECADRON [Suspect]
     Active Substance: DEXAMETHASONE
     Dosage: 2 MG, QD
     Dates: start: 20190411, end: 20190508
  34. DECADRON [Suspect]
     Active Substance: DEXAMETHASONE
     Dosage: 1.5 MG, QD
     Dates: start: 20190509, end: 20190529
  35. DECADRON [Suspect]
     Active Substance: DEXAMETHASONE
     Dosage: 1 MG, QD
     Dates: start: 20190727, end: 20190728
  36. DECADRON [Suspect]
     Active Substance: DEXAMETHASONE
     Dosage: 2 MG, QD
     Dates: start: 20190729, end: 20191002
  37. DECADRON [Suspect]
     Active Substance: DEXAMETHASONE
     Dosage: 1 MG, QD
     Dates: start: 20191003, end: 20191030
  38. DECADRON [Suspect]
     Active Substance: DEXAMETHASONE
     Dosage: 2 MG, QD
     Dates: start: 20191031, end: 20191122
  39. DECADRON [Suspect]
     Active Substance: DEXAMETHASONE
     Dosage: 1 MG, QD
     Dates: start: 20191123, end: 20191129
  40. DECADRON [Suspect]
     Active Substance: DEXAMETHASONE
     Dosage: 3 MG, QD
     Dates: start: 20191130, end: 20191206
  41. DECADRON [Suspect]
     Active Substance: DEXAMETHASONE
     Dosage: 2.5 MG, QD
     Dates: start: 20191207, end: 20191218
  42. DECADRON [Suspect]
     Active Substance: DEXAMETHASONE
     Dosage: 2 MG, QD
     Dates: start: 20191219, end: 20200108
  43. DECADRON [Suspect]
     Active Substance: DEXAMETHASONE
     Dosage: 1 MG, QD
     Dates: start: 20200109, end: 20200116
  44. DECADRON [Suspect]
     Active Substance: DEXAMETHASONE
     Dosage: 4 MG
     Dates: start: 20200116, end: 20200126
  45. DECADRON [Suspect]
     Active Substance: DEXAMETHASONE
     Dosage: 4 MG, QD
     Dates: start: 20200117, end: 20200120
  46. DECADRON [Suspect]
     Active Substance: DEXAMETHASONE
     Dosage: 1 MG, QD
     Dates: start: 20200121, end: 20200311
  47. DECADRON [Suspect]
     Active Substance: DEXAMETHASONE
     Dosage: 1.5 MG, QD
     Dates: start: 20200312, end: 20200407
  48. DECADRON [Suspect]
     Active Substance: DEXAMETHASONE
     Dosage: 1 MG, QD
     Dates: start: 20200408, end: 20200608
  49. DECADRON [Suspect]
     Active Substance: DEXAMETHASONE
     Dosage: 2 MG, QD
     Dates: start: 20200609, end: 20200610
  50. DECADRON [Suspect]
     Active Substance: DEXAMETHASONE
     Dosage: 1 MG, QD
     Dates: start: 20200611, end: 20200701
  51. DECADRON [Suspect]
     Active Substance: DEXAMETHASONE
     Dosage: 2 MG, QD
     Dates: start: 20200702, end: 20200706
  52. DECADRON [Suspect]
     Active Substance: DEXAMETHASONE
     Dosage: 3 MG, QD
     Dates: start: 20200707, end: 20200713
  53. DECADRON [Suspect]
     Active Substance: DEXAMETHASONE
     Dosage: 2 MG, QD
     Dates: start: 20200714, end: 20200727
  54. DECADRON [Suspect]
     Active Substance: DEXAMETHASONE
     Dosage: 1.5 MG, QD
     Dates: start: 20200728, end: 20200804
  55. DECADRON [Suspect]
     Active Substance: DEXAMETHASONE
     Dosage: 1 MG, QD
     Dates: start: 20200805, end: 20200914
  56. DECADRON [Suspect]
     Active Substance: DEXAMETHASONE
     Dosage: 2 MG, QD
     Dates: start: 20200915
  57. CELESTAMINE COMBINATION TABLETS [Concomitant]
     Dosage: BETAMETHASONE 0.5 MG, D-CHLORPHENIRAMINE MALEATE 4 MG, PER DAY
     Dates: end: 20200720
  58. CELESTAMINE COMBINATION TABLETS [Concomitant]
     Dosage: QD
     Dates: start: 20200721, end: 20200804
  59. CELESTAMINE COMBINATION TABLETS [Concomitant]
     Dosage: QD
     Dates: start: 20200805, end: 20200914
  60. CELESTAMINE COMBINATION TABLETS [Concomitant]
     Dosage: QD
     Dates: start: 20200913
  61. SOLU-CORTEF INJECTION [Concomitant]
     Indication: Asthma
     Dosage: 200 MG, QD
     Route: 042
     Dates: start: 20200119, end: 20200119
  62. SOLU-CORTEF INJECTION [Concomitant]
     Dosage: UNK
     Dates: start: 20200116, end: 20200126
  63. DEXAMETHASONE SODIUM PHOSPHATE [Concomitant]
     Active Substance: DEXAMETHASONE SODIUM PHOSPHATE
     Indication: Asthma
     Dosage: UNK UNK, QD
     Dates: start: 20191122, end: 20191207
  64. DEXAMETHASONE SODIUM PHOSPHATE [Concomitant]
     Active Substance: DEXAMETHASONE SODIUM PHOSPHATE
     Dosage: 1.65 MG, QD
     Route: 042
     Dates: start: 20200121, end: 20200121
  65. DEXAMETHASONE SODIUM PHOSPHATE [Concomitant]
     Active Substance: DEXAMETHASONE SODIUM PHOSPHATE
     Dosage: 3.3 MG, QD
     Route: 042
     Dates: start: 20200602, end: 20200608
  66. DEXAMETHASONE SODIUM PHOSPHATE [Concomitant]
     Active Substance: DEXAMETHASONE SODIUM PHOSPHATE
     Dosage: 3.3 MG, QD
     Route: 042
     Dates: start: 20200918, end: 20200923
  67. SYMBICORT [Concomitant]
     Active Substance: BUDESONIDE\FORMOTEROL FUMARATE DIHYDRATE
     Indication: Eosinophilic granulomatosis with polyangiitis
     Dosage: BUD 640 ?G FOR 18 ?G, PER DAY
     Route: 055
  68. DIFLUPREDNATE [Concomitant]
     Active Substance: DIFLUPREDNATE
     Dosage: ADEQUATE DOSE, QD
     Dates: start: 20191211
  69. BREZTRI [Concomitant]
     Active Substance: BUDESONIDE\FORMOTEROL\GLYCOPYRROLATE
     Indication: Eosinophilic granulomatosis with polyangiitis
     Dosage: BUD 640 ?G GLY 36 ?G FOR 20 ?G, PER DAY
     Route: 055
     Dates: start: 20200526
  70. STIBRON CREAM [Concomitant]
     Dosage: ADEQUATE DOSE, QD
     Dates: start: 20200831
  71. MONTELUKAST [Concomitant]
     Active Substance: MONTELUKAST SODIUM
     Indication: Eosinophilic granulomatosis with polyangiitis
     Dosage: UNK
  72. ASVERIN (TIPEPIDINE HIBENZATE) [Concomitant]
     Active Substance: TIPEPIDINE HIBENZATE
     Indication: Eosinophilic granulomatosis with polyangiitis
     Dosage: UNK
  73. CARBOCYSTEINE [Concomitant]
     Active Substance: CARBOCYSTEINE
     Indication: Eosinophilic granulomatosis with polyangiitis
     Dosage: UNK
  74. MAGNESIUM OXIDE [Concomitant]
     Active Substance: MAGNESIUM OXIDE
     Indication: Prophylaxis
     Dosage: UNK
  75. CEFDITOREN PIVOXIL TABLETS [Concomitant]
     Indication: Prophylaxis
     Dosage: UNK
  76. NEXIUM [Concomitant]
     Active Substance: ESOMEPRAZOLE MAGNESIUM
     Indication: Prophylaxis
     Dosage: UNK
  77. CALONAL [Concomitant]
     Active Substance: ACETAMINOPHEN
     Indication: Eosinophilic granulomatosis with polyangiitis
     Dosage: UNK
     Dates: start: 20200324, end: 20200518
  78. CALONAL [Concomitant]
     Active Substance: ACETAMINOPHEN
     Indication: Headache
  79. HEPARINOID [Concomitant]
     Dosage: UNK
  80. BILASTINE [Concomitant]
     Active Substance: BILASTINE
     Indication: Acne
     Dosage: UNK
     Dates: start: 20190411, end: 20190826
  81. CODEINE PHOSPHATE POWDER [Concomitant]
     Indication: Eosinophilic granulomatosis with polyangiitis
     Dosage: UNK
  82. SPIRIVA RESPIMAT [Concomitant]
     Active Substance: TIOTROPIUM BROMIDE
     Indication: Eosinophilic granulomatosis with polyangiitis
     Dosage: UNK
  83. CLARITHROMYCIN [Concomitant]
     Active Substance: CLARITHROMYCIN
     Indication: Prophylaxis
     Dosage: UNK
  84. RUPAFIN [Concomitant]
     Active Substance: RUPATADINE FUMARATE
     Dosage: UNK
  85. BEPOTASTINE BESYLATE [Concomitant]
     Active Substance: BEPOTASTINE BESYLATE
     Dosage: UNK
  86. ALLEGRA TABLETS [Concomitant]
     Dosage: UNK
  87. LAC-B GRANULAR POWDER N [Concomitant]
     Indication: Prophylaxis
     Dosage: UNK
  88. EBASTEL OD TABLETS [Concomitant]
     Dosage: UNK
  89. PROCATEROL HYDROCHLORIDE [Concomitant]
     Active Substance: PROCATEROL HYDROCHLORIDE
     Indication: Eosinophilic granulomatosis with polyangiitis
     Dosage: UNK
     Dates: start: 20191122, end: 20191207
  90. PROCATEROL HYDROCHLORIDE [Concomitant]
     Active Substance: PROCATEROL HYDROCHLORIDE
     Indication: Asthma
  91. LOXOPROFEN SODIUM [Concomitant]
     Active Substance: LOXOPROFEN SODIUM
     Indication: Eosinophilic granulomatosis with polyangiitis
     Dosage: UNK
  92. AZUNOL OINTMENT [Concomitant]
     Dosage: UNK
  93. EPIPEN (JAPAN) [Concomitant]
     Dosage: UNK
  94. XYZAL [Concomitant]
     Active Substance: LEVOCETIRIZINE DIHYDROCHLORIDE
     Dosage: UNK
  95. MIYA-BM FINE GRANULES [Concomitant]
     Indication: Prophylaxis
     Dosage: UNK
  96. REBAMIPIDE [Concomitant]
     Active Substance: REBAMIPIDE
     Indication: Prophylaxis
     Dosage: UNK
  97. HIRUDOID CREAM [Concomitant]
     Dosage: UNK
  98. MIYA-BM [Concomitant]
     Active Substance: CLOSTRIDIUM BUTYRICUM SPORES STRAIN M-55
     Indication: Prophylaxis
     Dosage: UNK
  99. TRAMCET COMBINATION TABLETS [Concomitant]
     Indication: Eosinophilic granulomatosis with polyangiitis
     Dosage: UNK
  100. AMITIZA CAPSULE [Concomitant]
     Indication: Prophylaxis
     Dosage: UNK
  101. ALLELOCK [Concomitant]
     Active Substance: OLOPATADINE HYDROCHLORIDE
     Dosage: UNK
  102. OLOPATADINE HYDROCHLORIDE OD TABLETS [Concomitant]
     Dosage: UNK
  103. FAMOTIDINE OD TABLETS [Concomitant]
     Indication: Prophylaxis
     Dosage: UNK
  104. PROTOPIC OINTMENT [Concomitant]
     Dosage: ADEQUATE DOSE, QD
     Dates: start: 20200928, end: 20210323
  105. MINOCYCLINE HYDROCHLORIDE CAPSULES [Concomitant]
     Dosage: UNK

REACTIONS (10)
  - Asthma [Recovered/Resolved]
  - Anaphylactic reaction [Recovered/Resolved]
  - Asthma [Recovered/Resolved]
  - Asthma [Recovered/Resolved]
  - Acne [Recovered/Resolved]
  - Herpes zoster [Recovering/Resolving]
  - Post herpetic neuralgia [Recovered/Resolved]
  - Headache [Recovered/Resolved]
  - Aphthous ulcer [Recovered/Resolved]
  - Asthma [Recovered/Resolved]

NARRATIVE: CASE EVENT DATE: 20190227
